FAERS Safety Report 18290178 (Version 2)
Quarter: 2021Q1

REPORT INFORMATION
  Report Type: Spontaneous
  Country: US (occurrence: US)
  Receive Date: 20200921
  Receipt Date: 20210131
  Transmission Date: 20210419
  Serious: Yes (Hospitalization, Disabling, Other)
  Sender: FDA-Public Use
  Company Number: US-PURDUE-USA-2020-0166389

PATIENT
  Sex: Male

DRUGS (5)
  1. OXYCONTIN [Suspect]
     Active Substance: OXYCODONE HYDROCHLORIDE
     Indication: PRODUCT USED FOR UNKNOWN INDICATION
     Dosage: UNK
     Route: 048
     Dates: start: 1990
  2. PERCOCET                           /00446701/ [Suspect]
     Active Substance: ACETAMINOPHEN\OXYCODONE HYDROCHLORIDE\OXYCODONE TEREPHTHALATE
     Indication: PRODUCT USED FOR UNKNOWN INDICATION
     Dosage: UNK
     Route: 065
     Dates: start: 1990
  3. FENTANYL. [Suspect]
     Active Substance: FENTANYL
     Indication: PRODUCT USED FOR UNKNOWN INDICATION
     Dosage: 100 MG, UNK
     Route: 062
     Dates: start: 1990
  4. HEROIN [Suspect]
     Active Substance: DIAMORPHINE
     Indication: PRODUCT USED FOR UNKNOWN INDICATION
     Dosage: UNK
     Route: 065
  5. RYZOLT [Suspect]
     Active Substance: TRAMADOL HYDROCHLORIDE
     Indication: PRODUCT USED FOR UNKNOWN INDICATION
     Dosage: UNK
     Route: 065
     Dates: start: 1990

REACTIONS (27)
  - Drug dependence [Unknown]
  - Seizure [Unknown]
  - Hypertension [Unknown]
  - Dyspnoea [Unknown]
  - Anger [Unknown]
  - Unevaluable event [Unknown]
  - Transient ischaemic attack [Unknown]
  - Illness [Unknown]
  - Rash [Unknown]
  - Anxiety [Unknown]
  - Amnesia [Unknown]
  - Migraine [Unknown]
  - Depression [Unknown]
  - Overdose [Unknown]
  - Drug abuse [Unknown]
  - Colitis ulcerative [Unknown]
  - Skin atrophy [Unknown]
  - Headache [Unknown]
  - Asthenia [Unknown]
  - Skin disorder [Unknown]
  - Balance disorder [Unknown]
  - General physical health deterioration [Unknown]
  - Road traffic accident [Unknown]
  - Myocardial infarction [Unknown]
  - Cardiac disorder [Unknown]
  - Disability [Unknown]
  - Fall [Unknown]

NARRATIVE: CASE EVENT DATE: 1990
